FAERS Safety Report 17907407 (Version 2)
Quarter: 2020Q2

REPORT INFORMATION
  Report Type: Spontaneous
  Country: ES (occurrence: ES)
  Receive Date: 20200617
  Receipt Date: 20200623
  Transmission Date: 20200714
  Serious: Yes (Other)
  Sender: FDA-Public Use
  Company Number: ES-TEVA-2020-ES-1787868

PATIENT
  Age: 52 Year
  Sex: Male
  Weight: 70 kg

DRUGS (8)
  1. ACCORD LOPINAVIR W/RITONAVIR [Suspect]
     Active Substance: LOPINAVIR\RITONAVIR
     Indication: COVID-19 PNEUMONIA
  2. CEFTRIAXONA (501A) [Suspect]
     Active Substance: CEFTRIAXONE
     Indication: COVID-19 PNEUMONIA
  3. HYDROXYCHLOROQUINE SULFATE. [Suspect]
     Active Substance: HYDROXYCHLOROQUINE SULFATE
     Indication: CORONAVIRUS INFECTION
     Dosage: 400MG EVERY 12 HOURS FOLLOWED BY 200MG EVERY 12 HOURS, UNIT DOSE: 1 DF?HIDROXICLOROQUINA (2143A)
     Route: 048
     Dates: start: 20200330, end: 20200403
  4. ACCORD LOPINAVIR W/RITONAVIR [Suspect]
     Active Substance: LOPINAVIR\RITONAVIR
     Indication: CORONAVIRUS INFECTION
     Dosage: 2 DF?LOPINAVIR/RITONAVIR ACCORD 200 MG/ 50 MG COMPRIMIDOS RECUBIERTOS CON PELICULA EFG , 120 COMPRIM
     Route: 048
     Dates: start: 20200331, end: 20200403
  5. AZITROMICINA (7019A) [Suspect]
     Active Substance: AZITHROMYCIN
     Indication: CORONAVIRUS INFECTION
     Dosage: 500 MG
     Route: 048
     Dates: start: 20200328, end: 20200402
  6. HYDROXYCHLOROQUINE SULFATE. [Suspect]
     Active Substance: HYDROXYCHLOROQUINE SULFATE
     Indication: COVID-19 PNEUMONIA
  7. AZITROMICINA (7019A) [Suspect]
     Active Substance: AZITHROMYCIN
     Indication: COVID-19 PNEUMONIA
  8. CEFTRIAXONA (501A) [Suspect]
     Active Substance: CEFTRIAXONE
     Indication: CORONAVIRUS INFECTION
     Dosage: 2 G
     Route: 042
     Dates: start: 20200328, end: 20200403

REACTIONS (2)
  - Bradycardia [Unknown]
  - Long QT syndrome [Unknown]

NARRATIVE: CASE EVENT DATE: 20200521
